FAERS Safety Report 9163791 (Version 1)
Quarter: 2013Q1

REPORT INFORMATION
  Report Type: Spontaneous
  Country: FR (occurrence: FR)
  Receive Date: 20130314
  Receipt Date: 20130314
  Transmission Date: 20140127
  Serious: Yes (Death, Congenital Anomaly, Other)
  Sender: FDA-Public Use
  Company Number: FR-PFIZER INC-2005083144

PATIENT
  Sex: Female

DRUGS (5)
  1. NEURONTIN [Suspect]
     Indication: ILL-DEFINED DISORDER
     Dosage: 300 MG, 3X/DAY
     Route: 064
  2. XANAX [Suspect]
     Indication: ILL-DEFINED DISORDER
     Dosage: 0.25 MG, 2X/DAY
     Route: 064
  3. RIVOTRIL [Suspect]
     Indication: ILL-DEFINED DISORDER
     Dosage: UNK
     Route: 064
  4. DEROXAT [Suspect]
     Indication: ILL-DEFINED DISORDER
     Dosage: 0.5 DOSE FORM, ORALLY, EVERY DAY
     Route: 064
  5. DI-ANTALVIC [Suspect]
     Indication: ILL-DEFINED DISORDER
     Dosage: UNK
     Route: 064

REACTIONS (5)
  - Maternal exposure during pregnancy [Fatal]
  - Multiple congenital abnormalities [Fatal]
  - Dysmorphism [Fatal]
  - Oesophageal atresia [Fatal]
  - Micrognathia [Fatal]
